FAERS Safety Report 6803430-3 (Version None)
Quarter: 2010Q2

REPORT INFORMATION
  Report Type: 
  Country: None (occurrence: None)
  Receive Date: 20100628
  Receipt Date: 20100616
  Transmission Date: 20101027
  Serious: Yes (Other)
  Sender: FDA-Public Use
  Company Number: US-PFIZER INC-2010075632

PATIENT
  Sex: Female
  Weight: 48 kg

DRUGS (4)
  1. CHANTIX [Suspect]
     Indication: SMOKING CESSATION THERAPY
     Dosage: 0.5 MG, 1X/DAY
     Route: 048
     Dates: start: 20070101
  2. CHANTIX [Interacting]
     Dosage: 1 MG, 2X/DAY
     Route: 048
     Dates: start: 20100101, end: 20100601
  3. CHANTIX [Interacting]
     Dosage: 0.5 MG, 1X/DAY
     Dates: start: 20100519, end: 20100601
  4. TOPIRAMATE [Interacting]
     Dosage: 200 MG, 2X/DAY

REACTIONS (4)
  - CONVULSION [None]
  - DEPRESSION [None]
  - DRUG EFFECT DECREASED [None]
  - SUICIDAL IDEATION [None]
